FAERS Safety Report 5750231-3 (Version None)
Quarter: 2008Q2

REPORT INFORMATION
  Report Type: 
  Country: None (occurrence: None)
  Receive Date: 20080527
  Receipt Date: 20080515
  Transmission Date: 20081010
  Serious: Yes (Other)
  Sender: FDA-Public Use
  Company Number: JP-PFIZER INC-2008043483

PATIENT

DRUGS (2)
  1. SULPERAZON [Suspect]
     Route: 042
  2. FAMOTIDINE [Suspect]

REACTIONS (1)
  - PLATELET COUNT DECREASED [None]
